FAERS Safety Report 25440250 (Version 1)
Quarter: 2025Q2

REPORT INFORMATION
  Report Type: Spontaneous
  Country: FR (occurrence: FR)
  Receive Date: 20250616
  Receipt Date: 20250616
  Transmission Date: 20250717
  Serious: Yes (Hospitalization, Other)
  Sender: BOEHRINGER INGELHEIM
  Company Number: None

PATIENT
  Age: 83 Year
  Sex: Female

DRUGS (7)
  1. JARDIANCE [Suspect]
     Active Substance: EMPAGLIFLOZIN
     Indication: Cardiac failure
     Dates: end: 20250527
  2. APIXABAN [Concomitant]
     Active Substance: APIXABAN
  3. SPIRONOLACTONE + ALTIZIDE [Concomitant]
     Dosage: 25MG/15MG : 1-0-0
  4. NEBIVOLOL [Concomitant]
     Active Substance: NEBIVOLOL
  5. IRBESARTAN [Concomitant]
     Active Substance: IRBESARTAN
  6. ACETAMINOPHEN [Concomitant]
     Active Substance: ACETAMINOPHEN
  7. DICLOFENAC DIETHYLAMINE [Concomitant]
     Active Substance: DICLOFENAC DIETHYLAMINE

REACTIONS (3)
  - Metabolic acidosis [Recovered/Resolved]
  - Acute kidney injury [Recovered/Resolved]
  - Hyperkalaemia [Recovered/Resolved]

NARRATIVE: CASE EVENT DATE: 20250525
